FAERS Safety Report 9463751 (Version 1)
Quarter: 2013Q3

REPORT INFORMATION
  Report Type: Spontaneous
  Country: ES (occurrence: ES)
  Receive Date: 20130819
  Receipt Date: 20130819
  Transmission Date: 20140515
  Serious: Yes (Other)
  Sender: FDA-Public Use
  Company Number: ES-GENZYME-THYM-1004028

PATIENT
  Sex: 0

DRUGS (1)
  1. THYMOGLOBULINE [Suspect]
     Indication: PRODUCT USED FOR UNKNOWN INDICATION
     Dosage: UNK
     Route: 065

REACTIONS (2)
  - Acute respiratory failure [Unknown]
  - Pyrexia [Unknown]
